FAERS Safety Report 20744760 (Version 1)
Quarter: 2022Q2

REPORT INFORMATION
  Report Type: Spontaneous
  Country: US (occurrence: None)
  Receive Date: 20220422
  Receipt Date: 20220422
  Transmission Date: 20220721
  Serious: No
  Sender: FDA-Public Use
  Company Number: None

PATIENT
  Age: 62 Year
  Sex: Female
  Weight: 72 kg

DRUGS (1)
  1. REPATHA [Suspect]
     Active Substance: EVOLOCUMAB
     Indication: Low density lipoprotein
     Dosage: OTHER QUANTITY : 2 140 ML;?OTHER FREQUENCY : 2 X A MONTH;?
     Route: 030
     Dates: start: 20220328, end: 20220411

REACTIONS (7)
  - Headache [None]
  - Nausea [None]
  - Dizziness [None]
  - Fatigue [None]
  - Rhinorrhoea [None]
  - Oropharyngeal pain [None]
  - Nasopharyngitis [None]

NARRATIVE: CASE EVENT DATE: 20220328
